FAERS Safety Report 14501665 (Version 1)
Quarter: 2018Q1

REPORT INFORMATION
  Report Type: Spontaneous
  Country: US (occurrence: US)
  Receive Date: 20180206
  Receipt Date: 20180206
  Transmission Date: 20180509
  Serious: No
  Sender: FDA-Public Use
  Company Number: None

PATIENT
  Age: 51 Year
  Sex: Female
  Weight: 53.55 kg

DRUGS (1)
  1. TENOFOVIR [Suspect]
     Active Substance: TENOFOVIR
     Indication: HEPATITIS B
     Route: 048
     Dates: start: 20180124, end: 20180131

REACTIONS (4)
  - Product substitution issue [None]
  - Nausea [None]
  - Fatigue [None]
  - Pruritus [None]

NARRATIVE: CASE EVENT DATE: 20180131
